FAERS Safety Report 5866021-7 (Version None)
Quarter: 2008Q3

REPORT INFORMATION
  Report Type: 
  Country: None (occurrence: None)
  Receive Date: 20080829
  Receipt Date: 20080821
  Transmission Date: 20090109
  Serious: Yes (Death, Hospitalization)
  Sender: FDA-Public Use
  Company Number: BE-ABBOTT-08P-013-0472354-00

PATIENT
  Age: 77 Year
  Sex: Female

DRUGS (7)
  1. TEVETEN [Suspect]
     Indication: HYPERTENSION
     Route: 048
     Dates: start: 20040401, end: 20070204
  2. VASEXTEN [Suspect]
     Indication: HYPERTENSION
     Route: 048
     Dates: start: 20061108, end: 20070204
  3. FUROSEMIDE [Concomitant]
     Indication: HYPERTENSION
     Route: 048
     Dates: end: 20070204
  4. CLONIDINE HYDROCHLORIDE [Concomitant]
     Indication: HYPERTENSION
     Route: 048
     Dates: start: 20030701, end: 20070204
  5. SIMVASTATIN [Concomitant]
     Indication: HYPERCHOLESTEROLAEMIA
     Route: 048
     Dates: start: 20060501, end: 20070204
  6. SERTRALINE [Concomitant]
     Indication: DEPRESSION
     Route: 048
     Dates: start: 20030701, end: 20070204
  7. LORAZEPAM [Concomitant]
     Indication: INSOMNIA
     Route: 048
     Dates: start: 20010101, end: 20070204

REACTIONS (5)
  - COLON CANCER [None]
  - DYSPNOEA [None]
  - INTESTINAL FISTULA [None]
  - MELAENA [None]
  - SEPSIS [None]
